FAERS Safety Report 7328494-2 (Version None)
Quarter: 2011Q1

REPORT INFORMATION
  Report Type: 
  Country: None (occurrence: None)
  Receive Date: 20110303
  Receipt Date: 20110222
  Transmission Date: 20110831
  Serious: Yes (Hospitalization, Other)
  Sender: FDA-Public Use
  Company Number: CA-JNJFOC-20110200564

PATIENT
  Sex: Female
  Weight: 49.2 kg

DRUGS (4)
  1. REMICADE [Suspect]
     Route: 042
  2. METRONIDAZOLE [Concomitant]
     Route: 048
  3. REMICADE [Suspect]
     Indication: CROHN'S DISEASE
     Route: 042
  4. PENTASA [Concomitant]
     Route: 065

REACTIONS (3)
  - CLOSTRIDIAL INFECTION [None]
  - WEIGHT DECREASED [None]
  - INTESTINAL RESECTION [None]
